FAERS Safety Report 10034379 (Version 4)
Quarter: 2014Q3

REPORT INFORMATION
  Report Type: Spontaneous
  Country: JP (occurrence: JP)
  Receive Date: 20140325
  Receipt Date: 20140905
  Transmission Date: 20150326
  Serious: Yes (Life-Threatening, Other)
  Sender: FDA-Public Use
  Company Number: JP-TAKEDA-2014TEU002450

PATIENT
  Age: 78 Year
  Sex: Male
  Weight: 50.6 kg

DRUGS (6)
  1. FENTANYL. [Concomitant]
     Active Substance: FENTANYL
     Indication: ANALGESIC THERAPY
     Dosage: 4 ML, Q1HR
     Route: 008
     Dates: start: 20140318, end: 20140318
  2. ESLAX [Concomitant]
     Active Substance: ROCURONIUM BROMIDE
     Indication: HYPOTONIA
     Dosage: 22 MG, Q1HR
     Route: 042
     Dates: start: 20140318, end: 20140318
  3. ULTIVA [Concomitant]
     Active Substance: REMIFENTANIL HYDROCHLORIDE
     Indication: SEDATIVE THERAPY
     Dosage: 0.1 ?G/KG, QD
     Route: 042
     Dates: start: 20140318, end: 20140318
  4. PROPOFOL. [Concomitant]
     Active Substance: PROPOFOL
     Indication: SEDATIVE THERAPY
     Dosage: 110 MG, QD
     Route: 042
     Dates: start: 20140318, end: 20140318
  5. SEVOFLURANE. [Concomitant]
     Active Substance: SEVOFLURANE
     Indication: SEDATIVE THERAPY
     Dosage: 1.5L /1MINUTE
     Route: 055
     Dates: start: 20140318, end: 20140318
  6. TACHOSIL [Suspect]
     Active Substance: FIBRINOGEN HUMAN\THROMBIN HUMAN
     Indication: PROPHYLAXIS
     Dosage: 1 SHEETS OF REGULAR SIZE/ 1 DAY
     Route: 065
     Dates: start: 20140318, end: 20140318

REACTIONS (1)
  - Anaphylactic shock [Recovered/Resolved]

NARRATIVE: CASE EVENT DATE: 20140318
